FAERS Safety Report 10613438 (Version 3)
Quarter: 2015Q1

REPORT INFORMATION
  Report Type: Spontaneous
  Country: US (occurrence: US)
  Receive Date: 20141128
  Receipt Date: 20150330
  Transmission Date: 20150720
  Serious: Yes (Other)
  Sender: FDA-Public Use
  Company Number: US-JNJFOC-20141117081

PATIENT
  Age: 44 Year
  Sex: Female
  Weight: 86.18 kg

DRUGS (8)
  1. NEURONTIN [Concomitant]
     Active Substance: GABAPENTIN
     Indication: CROHN^S DISEASE
     Dosage: 2 YEARS
     Route: 065
  2. HYDROCODONE [Concomitant]
     Active Substance: HYDROCODONE
     Dosage: 5 YEARS
     Route: 065
  3. ZOFRAN [Concomitant]
     Active Substance: ONDANSETRON HYDROCHLORIDE
     Indication: NAUSEA
     Dosage: 5 YEARS
     Route: 065
  4. XANAX [Concomitant]
     Active Substance: ALPRAZOLAM
     Indication: ANXIETY
     Dosage: 5 YEARS
     Route: 065
  5. ZOLOFT [Concomitant]
     Active Substance: SERTRALINE HYDROCHLORIDE
     Indication: DEPRESSION
     Dosage: 1 YEAR
     Route: 065
  6. AMBIEN [Concomitant]
     Active Substance: ZOLPIDEM TARTRATE
     Indication: INSOMNIA
     Dosage: 5 YEARS
     Route: 065
  7. REMICADE [Suspect]
     Active Substance: INFLIXIMAB
     Indication: CROHN^S DISEASE
     Route: 042
     Dates: start: 1998, end: 20141012
  8. GABAPENTIN. [Concomitant]
     Active Substance: GABAPENTIN
     Dosage: 5 YEARS
     Route: 065

REACTIONS (19)
  - Ileostomy [Unknown]
  - Loss of consciousness [Unknown]
  - Dehydration [Not Recovered/Not Resolved]
  - Dyspnoea [Recovering/Resolving]
  - Heart rate increased [Recovering/Resolving]
  - Ear infection [Unknown]
  - Blindness [Unknown]
  - Anxiety [Not Recovered/Not Resolved]
  - Drug specific antibody present [Not Recovered/Not Resolved]
  - Drug ineffective [Not Recovered/Not Resolved]
  - Blister [Unknown]
  - Drug effect decreased [Not Recovered/Not Resolved]
  - Contusion [Recovering/Resolving]
  - Fall [Unknown]
  - Fungal infection [Unknown]
  - Rash [Recovering/Resolving]
  - Nausea [Unknown]
  - Eye injury [Unknown]
  - Psoriasis [Recovering/Resolving]

NARRATIVE: CASE EVENT DATE: 2011
